FAERS Safety Report 23667700 (Version 2)
Quarter: 2024Q2

REPORT INFORMATION
  Report Type: Spontaneous
  Country: AT (occurrence: AT)
  Receive Date: 20240325
  Receipt Date: 20240408
  Transmission Date: 20240716
  Serious: Yes (Hospitalization, Other)
  Sender: FDA-Public Use
  Company Number: None

PATIENT
  Age: 39 Year
  Sex: Female

DRUGS (15)
  1. PERJETA [Suspect]
     Active Substance: PERTUZUMAB
     Indication: Breast neoplasm
     Dosage: PERJETA KONZ Z. INF.LSG IN NACL 0.9% 250ML OVER 30 MIN
     Route: 065
     Dates: start: 20240103, end: 20240103
  2. PERJETA [Suspect]
     Active Substance: PERTUZUMAB
     Dosage: PERJETA KONZ Z. INF.LSG IN NACL 0.9% 250ML OVER 30 MIN
     Route: 065
     Dates: start: 20231213, end: 20231213
  3. PERJETA [Suspect]
     Active Substance: PERTUZUMAB
     Dosage: PERJETA KONZ Z. INF.LSG IN NACL 0.9% 250ML OVER 30 MIN
     Route: 065
     Dates: start: 20240229, end: 20240229
  4. PERJETA [Suspect]
     Active Substance: PERTUZUMAB
     Dosage: PERJETA KONZ Z. INF.LSG IN NACL 0.9% 250ML OVER 30 MIN
     Route: 065
     Dates: start: 20240131, end: 20240131
  5. HERZUMA [Suspect]
     Active Substance: TRASTUZUMAB-PKRB
     Indication: Breast neoplasm
     Route: 065
     Dates: start: 20240103, end: 20240103
  6. HERZUMA [Suspect]
     Active Substance: TRASTUZUMAB-PKRB
     Route: 065
     Dates: start: 20240131, end: 20240131
  7. HERZUMA [Suspect]
     Active Substance: TRASTUZUMAB-PKRB
     Route: 065
     Dates: start: 20240229, end: 20240229
  8. HERZUMA [Suspect]
     Active Substance: TRASTUZUMAB-PKRB
     Route: 065
     Dates: start: 20231213, end: 20231213
  9. ZOFRAN [Suspect]
     Active Substance: ONDANSETRON HYDROCHLORIDE
     Indication: Vomiting
     Route: 065
  10. CYCLOPHOSPHAMIDE [Suspect]
     Active Substance: CYCLOPHOSPHAMIDE
     Indication: Breast neoplasm
     Dosage: CYCLOPHOSPHAMIDE SANDOZ PLV F. INF.LSG (600MG/M2) IN NACL 0.9% 500ML OVER 60 MIN
     Route: 065
     Dates: start: 20231213, end: 20231213
  11. CYCLOPHOSPHAMIDE [Suspect]
     Active Substance: CYCLOPHOSPHAMIDE
     Dosage: CYCLOPHOSPHAMIDE SANDOZ PLV F. INF.LSG (600MG/M2) IN NACL 0.9% 500ML OVER 60 MIN
     Route: 065
     Dates: start: 20240103, end: 20240103
  12. CYCLOPHOSPHAMIDE [Suspect]
     Active Substance: CYCLOPHOSPHAMIDE
     Dosage: CYCLOPHOSPHAMIDE SANDOZ PLV F. INF.LSG (600MG/M2) IN NACL 0.9% 500ML OVER 60 MIN
     Route: 065
     Dates: start: 20240131, end: 20240131
  13. EPIRUBICIN [Suspect]
     Active Substance: EPIRUBICIN
     Indication: Breast neoplasm
     Dosage: EPIRUBICIN ACCORD LSG (90MG/M2) AD NACL 0.9% 250ML OVER 10 MIN
     Route: 065
     Dates: start: 20231213, end: 20231213
  14. EPIRUBICIN [Suspect]
     Active Substance: EPIRUBICIN
     Dosage: EPIRUBICIN ACCORD LSG (90MG/M2) AD NACL 0.9% 250ML OVER 10 MIN
     Route: 065
     Dates: start: 20240103, end: 20240103
  15. EPIRUBICIN [Suspect]
     Active Substance: EPIRUBICIN
     Dosage: EPIRUBICIN ACCORD LSG (90MG/M2) AD NACL 0.9% 250ML OVER 10 MIN
     Route: 065
     Dates: start: 20240131, end: 20240131

REACTIONS (7)
  - Serum ferritin increased [Recovering/Resolving]
  - Liver function test abnormal [Recovering/Resolving]
  - Thrombocytopenia [Recovering/Resolving]
  - Asthenia [Recovered/Resolved]
  - Diarrhoea [Recovered/Resolved]
  - Blood lactate dehydrogenase increased [Recovering/Resolving]
  - General physical health deterioration [Recovered/Resolved]

NARRATIVE: CASE EVENT DATE: 20240131
